FAERS Safety Report 20059471 (Version 1)
Quarter: 2021Q4

REPORT INFORMATION
  Report Type: Spontaneous
  Country: US (occurrence: None)
  Receive Date: 20211111
  Receipt Date: 20211111
  Transmission Date: 20220303
  Serious: Yes (Hospitalization)
  Sender: FDA-Public Use
  Company Number: None

PATIENT
  Sex: Female

DRUGS (36)
  1. BETHKIS [Suspect]
     Active Substance: TOBRAMYCIN
     Indication: Cystic fibrosis
     Dosage: OTHER QUANTITY : 300 MG/4ML; INHALE 4 ML VIA NEBULIZIER TWICE DAILY FOR 28 DAYS FOLLOWED BY 28 DAYS
     Route: 055
     Dates: start: 20200508
  2. BETHKIS [Suspect]
     Active Substance: TOBRAMYCIN
     Indication: Cystic fibrosis lung
  3. BETHKIS [Suspect]
     Active Substance: TOBRAMYCIN
     Indication: Cystic fibrosis lung
  4. BETHKIS [Suspect]
     Active Substance: TOBRAMYCIN
     Indication: Cystic fibrosis lung
  5. ADVAIR DISKU [Concomitant]
  6. ACETAMINOPHEN\CODEINE PHOSPHATE [Concomitant]
     Active Substance: ACETAMINOPHEN\CODEINE PHOSPHATE
  7. AZITHROMYCIN [Concomitant]
     Active Substance: AZITHROMYCIN
  8. BENTYL [Concomitant]
     Active Substance: DICYCLOMINE HYDROCHLORIDE
  9. BENZONATATE [Concomitant]
     Active Substance: BENZONATATE
  10. CALCIUM CITRATE+ D3 MAXI [Concomitant]
  11. CARAFATE [Concomitant]
     Active Substance: SUCRALFATE
  12. CYCLOBENZAPRINE [Concomitant]
     Active Substance: CYCLOBENZAPRINE
  13. D-5000 [Concomitant]
  14. ELIQUIS [Concomitant]
     Active Substance: APIXABAN
  15. FAMOTIDINE [Concomitant]
     Active Substance: FAMOTIDINE
  16. FLONASE ALGY SPR [Concomitant]
  17. GUAIFENESIN [Concomitant]
     Active Substance: GUAIFENESIN
  18. LEVAQUIN [Concomitant]
     Active Substance: LEVOFLOXACIN
  19. LORATADINE [Concomitant]
     Active Substance: LORATADINE
  20. MELATONIN [Concomitant]
     Active Substance: MELATONIN
  21. MUCINEX [Concomitant]
     Active Substance: GUAIFENESIN
  22. PANCREAZE [Concomitant]
     Active Substance: PANCRELIPASE AMYLASE\PANCRELIPASE LIPASE\PANCRELIPASE PROTEASE
  23. PANTOPRAZOLE [Concomitant]
     Active Substance: PANTOPRAZOLE
  24. PARI LC PLUS NEBULIZER [Concomitant]
  25. PROMETHAZINE [Concomitant]
     Active Substance: PROMETHAZINE HYDROCHLORIDE
  26. SALINE SOL [Concomitant]
  27. SEROQUEL [Concomitant]
     Active Substance: QUETIAPINE FUMARATE
  28. SERTRALINE [Concomitant]
     Active Substance: SERTRALINE HYDROCHLORIDE
  29. SIDESTREAM NEBULIZER/REUS [Concomitant]
  30. TOPAMAX [Concomitant]
     Active Substance: TOPIRAMATE
  31. TRAMADOL HCL [Concomitant]
     Active Substance: TRAMADOL HYDROCHLORIDE
  32. TRIKAFTA [Concomitant]
     Active Substance: ELEXACAFTOR\IVACAFTOR\TEZACAFTOR
  33. URSODIOL [Concomitant]
     Active Substance: URSODIOL
  34. VITAMIN D3 [Concomitant]
     Active Substance: CHOLECALCIFEROL
  35. XIFAXAN [Concomitant]
     Active Substance: RIFAXIMIN
  36. ZOLOFT [Concomitant]
     Active Substance: SERTRALINE HYDROCHLORIDE

REACTIONS (1)
  - Infective pulmonary exacerbation of cystic fibrosis [None]
